FAERS Safety Report 8590863-0 (Version None)
Quarter: 2012Q3

REPORT INFORMATION
  Report Type: 
  Country: None (occurrence: None)
  Receive Date: 20120813
  Receipt Date: 20120803
  Transmission Date: 20120928
  Serious: Yes (Other)
  Sender: FDA-Public Use
  Company Number: PHHY2012BR060071

PATIENT
  Sex: Female

DRUGS (9)
  1. LANTUS [Suspect]
     Dosage: 20 IU, A DAY
  2. HYGROTON [Suspect]
     Indication: HYPERTENSION
     Dosage: 25 MG, QD
     Route: 048
  3. NORVASC [Suspect]
     Dosage: UNK UKN, QD
  4. DAFLON [Suspect]
     Dosage: UNK UKN, TID
  5. OMEPRAZOLE [Suspect]
     Dosage: 20 MG, BID
  6. SILVER SULFADIAZINE [Suspect]
     Dosage: 2 DF, PER DAY
  7. TRAMADOL HYDROCHLORIDE [Suspect]
     Dosage: 50 MG, QID
  8. NORVASC [Suspect]
     Dosage: UNK UKN, QD
  9. NEURONTIN [Suspect]
     Dosage: 300 MG, TID

REACTIONS (5)
  - OSTEOARTHRITIS [None]
  - DIABETES MELLITUS [None]
  - ARTHRALGIA [None]
  - SKIN ULCER [None]
  - VARICOSE ULCERATION [None]
